FAERS Safety Report 15724972 (Version 1)
Quarter: 2018Q4

REPORT INFORMATION
  Report Type: Spontaneous
  Country: ES (occurrence: ES)
  Receive Date: 20181214
  Receipt Date: 20181214
  Transmission Date: 20190205
  Serious: Yes (Hospitalization)
  Sender: FDA-Public Use
  Company Number: ES-MYLANLABS-2018M1092434

PATIENT
  Age: 87 Year
  Sex: Female
  Weight: 52 kg

DRUGS (11)
  1. ADIRO [Concomitant]
     Active Substance: ASPIRIN
     Route: 048
  2. FUROSEMIDA                         /00032601/ [Concomitant]
     Active Substance: FUROSEMIDE
     Dosage: 1-1/2-0
     Route: 048
     Dates: start: 2017
  3. ESPIRONOLACTONA [Concomitant]
     Active Substance: SPIRONOLACTONE
     Dosage: 0-1-0
     Route: 048
     Dates: start: 2017
  4. EMULIQUEN SIMPLE                   /00887401/ [Concomitant]
  5. ITRACONAZOLE. [Interacting]
     Active Substance: ITRACONAZOLE
     Indication: PRODUCT USED FOR UNKNOWN INDICATION
     Dosage: 1/ 24 HORAS, DOSIS DESCONOCIDA
     Route: 048
     Dates: start: 20180327, end: 20180330
  6. IRBESARTAN. [Concomitant]
     Active Substance: IRBESARTAN
     Dosage: 0-0-1/2
     Route: 048
     Dates: start: 2017
  7. SINEMET PLUS [Concomitant]
     Active Substance: CARBIDOPA\LEVODOPA
     Route: 048
  8. FERROPROTINA                       /00023527/ [Concomitant]
     Dosage: UNK
     Route: 048
  9. CITALOPRAM [Interacting]
     Active Substance: CITALOPRAM HYDROBROMIDE
     Indication: PRODUCT USED FOR UNKNOWN INDICATION
     Dosage: 10 MG, 0-0-1
     Route: 048
     Dates: start: 2017
  10. ATORVASTATIN [Suspect]
     Active Substance: ATORVASTATIN
     Indication: PRODUCT USED FOR UNKNOWN INDICATION
     Dosage: 40 MG, 0-0-1
     Route: 048
     Dates: start: 2017
  11. OMEPRAZOLE. [Interacting]
     Active Substance: OMEPRAZOLE
     Indication: PRODUCT USED FOR UNKNOWN INDICATION
     Dosage: 20 MG, 1-0-0
     Route: 048
     Dates: start: 2017

REACTIONS (2)
  - Status epilepticus [Not Recovered/Not Resolved]
  - Drug interaction [Not Recovered/Not Resolved]

NARRATIVE: CASE EVENT DATE: 20180329
